FAERS Safety Report 16629245 (Version 1)
Quarter: 2019Q3

REPORT INFORMATION
  Report Type: Report from Study
  Country: CN (occurrence: CN)
  Receive Date: 20190725
  Receipt Date: 20190725
  Transmission Date: 20191004
  Serious: Yes (Other)
  Sender: FDA-Public Use
  Company Number: CN-ROCHE-2358214

PATIENT
  Sex: Female

DRUGS (3)
  1. TRASTUZUMAB. [Suspect]
     Active Substance: TRASTUZUMAB
     Indication: HER-2 POSITIVE BREAST CANCER
     Route: 041
  2. TRASTUZUMAB. [Suspect]
     Active Substance: TRASTUZUMAB
     Route: 041
  3. LAPATINIB [Suspect]
     Active Substance: LAPATINIB
     Indication: HER-2 POSITIVE BREAST CANCER
     Route: 048

REACTIONS (3)
  - Rash [Unknown]
  - Diarrhoea [Unknown]
  - Hepatic function abnormal [Unknown]
